FAERS Safety Report 6186312-2 (Version None)
Quarter: 2009Q2

REPORT INFORMATION
  Report Type: 
  Country: None (occurrence: None)
  Receive Date: 20090511
  Receipt Date: 20090504
  Transmission Date: 20091009
  Serious: Yes (Hospitalization, Other)
  Sender: FDA-Public Use
  Company Number: PHHO2008NL05121

PATIENT
  Sex: Female
  Weight: 68 kg

DRUGS (8)
  1. AEB071 AEB+GELCAP [Suspect]
     Indication: RENAL TRANSPLANT
     Dosage: 300 MG, BID
     Route: 048
     Dates: start: 20080410, end: 20080423
  2. AFINITOR [Suspect]
     Dosage: 1.5 MG, BID
     Dates: start: 20080410, end: 20080421
  3. COTRIM [Concomitant]
     Indication: RENAL FAILURE
     Dosage: 480 MG, QD
     Route: 048
     Dates: start: 20080411, end: 20080421
  4. ENALAPRIL MALEATE [Concomitant]
     Dates: end: 20080423
  5. LACTULOSE [Concomitant]
  6. CHLORHEXIDINE GLUCONATE [Concomitant]
  7. METOCLOPRAMIDE [Concomitant]
     Dates: end: 20080423
  8. NYSTATINE [Concomitant]
     Dates: end: 20080421

REACTIONS (4)
  - BLOOD CREATININE INCREASED [None]
  - RENAL IMPAIRMENT [None]
  - RENAL TUBULAR DISORDER [None]
  - TRANSPLANT FAILURE [None]
